FAERS Safety Report 9452743 (Version 1)
Quarter: 2013Q3

REPORT INFORMATION
  Report Type: Spontaneous
  Country: US (occurrence: US)
  Receive Date: 20130812
  Receipt Date: 20130812
  Transmission Date: 20140515
  Serious: No
  Sender: FDA-Public Use
  Company Number: US-BAYER-2013-095219

PATIENT
  Sex: Female

DRUGS (2)
  1. ACARBOSE [Suspect]
     Indication: HYPOGLYCAEMIA
  2. MIGLITOL [Suspect]
     Indication: HYPOGLYCAEMIA

REACTIONS (2)
  - Drug eruption [None]
  - Drug hypersensitivity [None]
